FAERS Safety Report 10235199 (Version 1)
Quarter: 2014Q2

REPORT INFORMATION
  Report Type: Spontaneous
  Country: US (occurrence: None)
  Receive Date: 20140612
  Receipt Date: 20140612
  Transmission Date: 20141212
  Serious: No
  Sender: FDA-Public Use
  Company Number: None

PATIENT
  Sex: Female
  Weight: 81.65 kg

DRUGS (3)
  1. SYNTHROID [Suspect]
     Indication: HYPOTHYROIDISM
     Dosage: 1 PILL
     Dates: end: 20140504
  2. XARELTO [Concomitant]
  3. LEVOTHYROXIN [Concomitant]

REACTIONS (3)
  - Dizziness [None]
  - Pulmonary embolism [None]
  - Presyncope [None]
